FAERS Safety Report 20584559 (Version 2)
Quarter: 2022Q2

REPORT INFORMATION
  Report Type: Spontaneous
  Country: US (occurrence: US)
  Receive Date: 20220311
  Receipt Date: 20220413
  Transmission Date: 20220720
  Serious: Yes (Hospitalization, Other)
  Sender: FDA-Public Use
  Company Number: US-ELI_LILLY_AND_COMPANY-US202203001178

PATIENT
  Sex: Female
  Weight: 107 kg

DRUGS (13)
  1. HUMALOG [Suspect]
     Active Substance: INSULIN LISPRO
     Indication: Type 2 diabetes mellitus
     Dosage: 32 U, PRN
     Route: 058
     Dates: start: 20200211
  2. HUMALOG [Suspect]
     Active Substance: INSULIN LISPRO
     Indication: Type 2 diabetes mellitus
     Dosage: 32 U, PRN
     Route: 058
     Dates: start: 20200211
  3. HUMALOG [Suspect]
     Active Substance: INSULIN LISPRO
     Dosage: 32 U, PRN
     Route: 058
  4. HUMALOG [Suspect]
     Active Substance: INSULIN LISPRO
     Dosage: 32 U, PRN
     Route: 058
  5. HUMALOG [Suspect]
     Active Substance: INSULIN LISPRO
     Dosage: 32 U, PRN
     Route: 058
  6. HUMALOG [Suspect]
     Active Substance: INSULIN LISPRO
     Dosage: 3 U, PRN
     Route: 058
  7. HUMALOG [Suspect]
     Active Substance: INSULIN LISPRO
     Dosage: 3 U, PRN
     Route: 058
  8. HUMALOG [Suspect]
     Active Substance: INSULIN LISPRO
     Dosage: 3 U, PRN
     Route: 058
  9. HUMALOG [Suspect]
     Active Substance: INSULIN LISPRO
     Dosage: 6 U, PRN
     Route: 058
  10. HUMALOG [Suspect]
     Active Substance: INSULIN LISPRO
     Dosage: 6 U, PRN
     Route: 058
  11. HUMALOG [Suspect]
     Active Substance: INSULIN LISPRO
     Dosage: 6 U, PRN
     Route: 058
  12. HUMALOG [Suspect]
     Active Substance: INSULIN LISPRO
     Dosage: 32 U, PRN (SLIDING SCLAE MAX DOSE)
     Route: 058
     Dates: end: 20220407
  13. HUMALOG [Suspect]
     Active Substance: INSULIN LISPRO
     Dosage: 32 U, PRN (SLIDING SCLAE MAX DOSE)
     Route: 058
     Dates: end: 20220407

REACTIONS (6)
  - Fall [Unknown]
  - Hip fracture [Recovering/Resolving]
  - Lower limb fracture [Recovering/Resolving]
  - Multiple fractures [Recovering/Resolving]
  - Blood glucose increased [Recovering/Resolving]
  - Accidental underdose [Unknown]
